FAERS Safety Report 25505664 (Version 1)
Quarter: 2025Q3

REPORT INFORMATION
  Report Type: Spontaneous
  Country: JP (occurrence: JP)
  Receive Date: 20250702
  Receipt Date: 20250702
  Transmission Date: 20251020
  Serious: Yes (Death, Other)
  Sender: SANOFI AVENTIS
  Company Number: JP-MEIJISEIKA-202503851_P_1

PATIENT

DRUGS (1)
  1. REZUROCK [Suspect]
     Active Substance: BELUMOSUDIL
     Dosage: 200 MG, QD
     Route: 048

REACTIONS (2)
  - Death [Fatal]
  - Adverse event [Unknown]
